FAERS Safety Report 6886965-7 (Version None)
Quarter: 2010Q3

REPORT INFORMATION
  Report Type: 
  Country: None (occurrence: None)
  Receive Date: 20100730
  Receipt Date: 20100719
  Transmission Date: 20110219
  Serious: Yes (Other)
  Sender: FDA-Public Use
  Company Number: US-WYE-H16304910

PATIENT
  Sex: Female

DRUGS (1)
  1. PRISTIQ [Suspect]
     Indication: INSOMNIA
     Route: 048
     Dates: start: 20090901

REACTIONS (3)
  - BLOOD OESTROGEN DECREASED [None]
  - SJOGREN'S SYNDROME [None]
  - VITAMIN D DECREASED [None]
